FAERS Safety Report 4307047-4 (Version None)
Quarter: 2004Q1

REPORT INFORMATION
  Report Type: 
  Country: None (occurrence: None)
  Receive Date: 20040225
  Receipt Date: 20040210
  Transmission Date: 20041129
  Serious: Yes (Death, Hospitalization)
  Sender: FDA-Public Use
  Company Number: 202188

PATIENT
  Age: 65 Year
  Sex: Male

DRUGS (2)
  1. MABTHERA        (RITUXIMAB) [Suspect]
     Indication: NON-HODGKIN'S LYMPHOMA
  2. BENDAMUSTINE (BENDAMUSTINE) [Suspect]
     Indication: NON-HODGKIN'S LYMPHOMA

REACTIONS (15)
  - ARTHRALGIA [None]
  - ATRIAL FLUTTER [None]
  - BUNDLE BRANCH BLOCK [None]
  - CARDIAC FAILURE [None]
  - CARDIOMYOPATHY [None]
  - CELL-MEDIATED IMMUNE DEFICIENCY [None]
  - CHLAMYDIAL INFECTION [None]
  - EJECTION FRACTION DECREASED [None]
  - FATIGUE [None]
  - GENERAL PHYSICAL HEALTH DETERIORATION [None]
  - HEART VALVE INSUFFICIENCY [None]
  - HYPOGAMMAGLOBULINAEMIA [None]
  - MOBILITY DECREASED [None]
  - SEPSIS [None]
  - WEIGHT DECREASED [None]
